FAERS Safety Report 5637779-7 (Version None)
Quarter: 2008Q1

REPORT INFORMATION
  Report Type: 
  Country: None (occurrence: None)
  Receive Date: 20080219
  Receipt Date: 20080211
  Transmission Date: 20080703
  Serious: Yes (Hospitalization)
  Sender: FDA-Public Use
  Company Number: TPA2007A02567

PATIENT
  Age: 65 Year
  Sex: Female
  Weight: 92.5338 kg

DRUGS (11)
  1. ACTOS [Suspect]
     Indication: TYPE 2 DIABETES MELLITUS
     Dosage: 15-30 MG BASED ON BLOOD SUGAR, 1 IN 1 D, PER ORAL, 30 MG, 1 IN 1 D, PER ORAL
     Route: 048
     Dates: start: 20040701
  2. ACTOS [Suspect]
     Indication: TYPE 2 DIABETES MELLITUS
     Dosage: 15-30 MG BASED ON BLOOD SUGAR, 1 IN 1 D, PER ORAL, 30 MG, 1 IN 1 D, PER ORAL
     Route: 048
     Dates: start: 20070601
  3. BP MEDS (ALL OTHER THERAPEUTIC PRODUCTS) [Suspect]
  4. GLUCOPHAGE [Concomitant]
  5. COUMADIN [Concomitant]
  6. ARIMIDEX [Concomitant]
  7. PRINIVIL [Concomitant]
  8. LASIX [Concomitant]
  9. JANUVIA (ALL OTHER THERAPEUTIC PRODUCTS) [Concomitant]
  10. POTASSIUM CHLORIDE [Concomitant]
  11. DYNACIRC [Concomitant]

REACTIONS (3)
  - BREAST CANCER [None]
  - DYSPNOEA [None]
  - PULMONARY THROMBOSIS [None]
